FAERS Safety Report 9271067 (Version 1)
Quarter: 2013Q2

REPORT INFORMATION
  Report Type: Spontaneous
  Country: BR (occurrence: BR)
  Receive Date: 20130506
  Receipt Date: 20130506
  Transmission Date: 20140414
  Serious: Yes (Hospitalization)
  Sender: FDA-Public Use
  Company Number: BR-AMGEN-BRASP2013031045

PATIENT
  Age: 30 Year
  Sex: Male
  Weight: 49 kg

DRUGS (3)
  1. ENBREL [Suspect]
     Indication: ANKYLOSING SPONDYLITIS
     Dosage: 50 MG, ONCE WEEKLY
     Dates: start: 201206, end: 201301
  2. CIPROFLOXACIN [Concomitant]
     Indication: CHRONIC SINUSITIS
     Dosage: 500 MG, 2X/DAY (EVERY 12 HOURS)
  3. PREDNISONE [Concomitant]
     Indication: JUVENILE IDIOPATHIC ARTHRITIS
     Dosage: 20 MG, UNK

REACTIONS (3)
  - Pruritus generalised [Recovering/Resolving]
  - Erythema [Recovering/Resolving]
  - Blister infected [Recovering/Resolving]
